FAERS Safety Report 24036596 (Version 2)
Quarter: 2024Q3

REPORT INFORMATION
  Report Type: Spontaneous
  Country: US (occurrence: US)
  Receive Date: 20240701
  Receipt Date: 20240909
  Transmission Date: 20241017
  Serious: Yes (Death, Other)
  Sender: SANDOZ
  Company Number: US-SANDOZ-SDZ2024US061460

PATIENT

DRUGS (1)
  1. NOREPINEPHRINE [Suspect]
     Active Substance: NOREPINEPHRINE\NOREPINEPHRINE BITARTRATE
     Indication: Product used for unknown indication
     Dosage: 4 MG/4 ML
     Route: 042
     Dates: start: 20240319

REACTIONS (2)
  - Cardiogenic shock [Fatal]
  - Product availability issue [Unknown]

NARRATIVE: CASE EVENT DATE: 20240319
